FAERS Safety Report 8475615-4 (Version None)
Quarter: 2012Q2

REPORT INFORMATION
  Report Type: 
  Country: None (occurrence: None)
  Receive Date: 20120628
  Receipt Date: 20120618
  Transmission Date: 20120825
  Serious: Yes (Other)
  Sender: FDA-Public Use
  Company Number: JP-ASTRAZENECA-2012SE42370

PATIENT
  Sex: Male

DRUGS (4)
  1. SYMMETREL [Concomitant]
     Route: 048
  2. LEXAPRO [Concomitant]
  3. SEROQUEL [Suspect]
     Route: 048
     Dates: end: 20120616
  4. TEGRETOL [Suspect]
     Route: 048
     Dates: end: 20120616

REACTIONS (2)
  - LIVER DISORDER [None]
  - CONVULSION [None]
